FAERS Safety Report 5287019-6 (Version None)
Quarter: 2007Q2

REPORT INFORMATION
  Report Type: 
  Country: None (occurrence: None)
  Receive Date: 20070404
  Receipt Date: 20070309
  Transmission Date: 20071010
  Serious: Yes (Hospitalization, Other)
  Sender: FDA-Public Use
  Company Number: JP-PFIZER INC-2007022610

PATIENT
  Age: 65 Year
  Sex: Female

DRUGS (5)
  1. MIGLITOL TABLET [Suspect]
     Indication: DIABETES MELLITUS
     Route: 048
     Dates: start: 20070203, end: 20070227
  2. MIGLITOL TABLET [Suspect]
     Route: 048
  3. MELBIN [Concomitant]
     Indication: DIABETES MELLITUS
     Route: 048
     Dates: start: 20060911
  4. LENDORMIN [Concomitant]
     Route: 048
  5. TALION [Concomitant]
     Route: 048

REACTIONS (4)
  - CHOLELITHIASIS [None]
  - FLATULENCE [None]
  - HEPATIC NEOPLASM MALIGNANT [None]
  - JAUNDICE [None]
